FAERS Safety Report 13573605 (Version 1)
Quarter: 2017Q2

REPORT INFORMATION
  Report Type: Other
  Country: FR (occurrence: FR)
  Receive Date: 20170523
  Receipt Date: 20170523
  Transmission Date: 20170830
  Serious: Yes (Other)
  Sender: FDA-Public Use
  Company Number: FR-EMCURE PHARMS-2017HTG00119

PATIENT
  Age: 20 Year
  Sex: Male

DRUGS (4)
  1. CYTARABINE KABI [Suspect]
     Active Substance: CYTARABINE
     Indication: PERIPHERAL T-CELL LYMPHOMA UNSPECIFIED
     Dosage: 400 MG/M2, UNK
     Route: 042
     Dates: start: 20161125, end: 20161128
  2. BICNU [Suspect]
     Active Substance: CARMUSTINE
     Indication: PERIPHERAL T-CELL LYMPHOMA UNSPECIFIED
     Dosage: 300 MG/M2, ONCE
     Route: 042
     Dates: start: 20161124, end: 20161124
  3. ALKERAN [Suspect]
     Active Substance: MELPHALAN
     Indication: PERIPHERAL T-CELL LYMPHOMA UNSPECIFIED
     Dosage: 140 MG/M2, UNK
     Route: 042
     Dates: start: 20161129, end: 20161129
  4. ETOPOPHOS [Suspect]
     Active Substance: ETOPOSIDE PHOSPHATE
     Indication: PERIPHERAL T-CELL LYMPHOMA UNSPECIFIED
     Dosage: 200 MG/M2, UNK
     Route: 042
     Dates: start: 20161125, end: 20161128

REACTIONS (4)
  - Neutropenic sepsis [Recovered/Resolved]
  - Mucosal inflammation [Recovered/Resolved]
  - Sinus tachycardia [Unknown]
  - Neutropenic colitis [Recovered/Resolved]

NARRATIVE: CASE EVENT DATE: 201612
